FAERS Safety Report 7463417-7 (Version None)
Quarter: 2011Q2

REPORT INFORMATION
  Report Type: 
  Country: None (occurrence: None)
  Receive Date: 20110506
  Receipt Date: 20110427
  Transmission Date: 20111010
  Serious: Yes (Death, Life-Threatening, Hospitalization)
  Sender: FDA-Public Use
  Company Number: B0697106A

PATIENT
  Sex: Male
  Weight: 60 kg

DRUGS (44)
  1. NEUTROGIN [Concomitant]
     Dosage: 250MCG PER DAY
     Dates: start: 20070712, end: 20070716
  2. CYCLOSPORINE [Concomitant]
     Indication: IMMUNOSUPPRESSION
     Dosage: 180MG PER DAY
     Route: 065
     Dates: start: 20070411, end: 20070427
  3. METHOTREXATE [Concomitant]
     Dosage: 10MG PER DAY
     Route: 065
     Dates: start: 20070419, end: 20070419
  4. URSO 250 [Concomitant]
     Dosage: 600MG PER DAY
     Route: 048
     Dates: start: 20070405, end: 20070717
  5. POLYGAM S/D [Concomitant]
     Dates: start: 20070514, end: 20070724
  6. VANCOMYCIN [Concomitant]
     Dosage: 1.5G PER DAY
     Route: 042
     Dates: start: 20070528, end: 20070723
  7. PAZUCROSS [Concomitant]
     Dosage: 300MG PER DAY
     Route: 042
     Dates: start: 20070711, end: 20070714
  8. PROBIOTICS [Concomitant]
     Dosage: 3G PER DAY
     Route: 048
     Dates: start: 20070630, end: 20070706
  9. REMICADE [Suspect]
  10. TACROLIMUS HYDRATE [Concomitant]
     Indication: IMMUNOSUPPRESSION
     Dosage: .9MG PER DAY
     Route: 065
     Dates: start: 20070429, end: 20070724
  11. VFEND [Concomitant]
     Dosage: 200MG PER DAY
     Route: 042
     Dates: start: 20070718, end: 20080724
  12. METHOTREXATE [Concomitant]
     Dosage: 10MG PER DAY
     Route: 065
     Dates: start: 20070416, end: 20070416
  13. CRAVIT [Concomitant]
     Dosage: 300MG PER DAY
     Route: 048
     Dates: start: 20070406, end: 20070509
  14. FLAGYL [Concomitant]
     Dosage: 500MG PER DAY
     Route: 048
     Dates: start: 20070411, end: 20070501
  15. MEROPENEM [Concomitant]
     Dosage: 1G PER DAY
     Route: 042
     Dates: start: 20070625, end: 20070707
  16. ALKERAN [Suspect]
     Indication: ALLOGENIC BONE MARROW TRANSPLANTATION THERAPY
     Dosage: 90MG PER DAY
     Route: 042
     Dates: start: 20070409, end: 20070410
  17. MYCOSYST [Concomitant]
     Dosage: 200MG PER DAY
     Route: 048
     Dates: start: 20061201, end: 20070405
  18. MINOMYCIN [Concomitant]
     Dosage: 200MG PER DAY
     Route: 042
     Dates: start: 20070707, end: 20070711
  19. FOSFOMYCIN [Concomitant]
     Dosage: 2G PER DAY
     Route: 042
     Dates: start: 20070520, end: 20070526
  20. FOSCAVIR [Suspect]
     Route: 042
     Dates: start: 20070425, end: 20070430
  21. PROGRAF [Suspect]
     Route: 065
  22. BAKTAR [Concomitant]
     Dosage: 2IUAX PER DAY
     Route: 048
     Dates: start: 20061201, end: 20070405
  23. MEROPENEM [Concomitant]
     Dosage: 1G PER DAY
     Route: 042
     Dates: start: 20070424, end: 20070501
  24. BIOFERMIN R [Concomitant]
     Dosage: 3G PER DAY
     Route: 048
     Dates: start: 20070509, end: 20070516
  25. BIOFERMIN R [Concomitant]
     Dosage: 3G PER DAY
     Route: 048
     Dates: start: 20070630, end: 20070706
  26. DORIPENEM [Concomitant]
     Dosage: .25MG PER DAY
     Route: 042
     Dates: start: 20070717, end: 20070724
  27. NEUTROGIN [Concomitant]
     Dosage: 250MCG PER DAY
     Dates: start: 20070418, end: 20070503
  28. NEUTROGIN [Concomitant]
     Dosage: 250MCG PER DAY
     Dates: start: 20070527, end: 20070528
  29. METHOTREXATE [Concomitant]
     Indication: IMMUNOSUPPRESSION
     Dosage: 15MG PER DAY
     Route: 065
     Dates: start: 20070414, end: 20070414
  30. SULFASALAZINE [Concomitant]
     Dosage: 3G PER DAY
     Route: 065
     Dates: start: 20070509, end: 20070520
  31. ALBUMIN (HUMAN) [Concomitant]
     Route: 042
     Dates: start: 20070514, end: 20070724
  32. TARGOCID [Concomitant]
     Dosage: 400MG PER DAY
     Route: 042
     Dates: start: 20070524, end: 20070528
  33. MODACIN [Concomitant]
     Dosage: 2G PER DAY
     Route: 042
     Dates: start: 20070527, end: 20070625
  34. FOSCAVIR [Suspect]
     Dosage: 119MG PER DAY
     Route: 042
     Dates: start: 20070504, end: 20070515
  35. PREDONINE [Concomitant]
     Indication: IMMUNOSUPPRESSION
     Dosage: 30MG PER DAY
     Route: 065
     Dates: start: 20070619, end: 20070724
  36. GASTER D [Concomitant]
     Dosage: 20MG PER DAY
     Route: 048
     Dates: start: 20061201, end: 20070516
  37. FUNGUARD [Concomitant]
     Dosage: 50MG PER DAY
     Route: 042
     Dates: start: 20070406, end: 20070717
  38. ZOVIRAX [Concomitant]
     Dosage: 1000MG PER DAY
     Route: 048
     Dates: start: 20070412, end: 20070505
  39. POLYMYXIN-B-SULFATE [Concomitant]
     Dosage: 3IU6 PER DAY
     Route: 048
     Dates: start: 20070513, end: 20070516
  40. MAXIPIME [Concomitant]
     Dosage: 4G PER DAY
     Route: 042
     Dates: start: 20070714, end: 20070717
  41. FUNGIZONE [Concomitant]
     Dosage: 9ML PER DAY
     Route: 048
     Dates: start: 20070706, end: 20070717
  42. FLUDARA [Concomitant]
     Indication: ALLOGENIC BONE MARROW TRANSPLANTATION THERAPY
     Dosage: 30MGM2 PER DAY
     Route: 042
     Dates: start: 20070406, end: 20070410
  43. MICARDIS [Concomitant]
     Dosage: 20MG PER DAY
     Route: 048
     Dates: start: 20070501, end: 20070503
  44. AMLODIPINE [Concomitant]
     Dosage: 5MG PER DAY
     Route: 048
     Dates: start: 20070504, end: 20070517

REACTIONS (14)
  - ENCEPHALITIS HERPES [None]
  - HISTIOCYTOSIS HAEMATOPHAGIC [None]
  - PULMONARY HAEMORRHAGE [None]
  - ACUTE RESPIRATORY FAILURE [None]
  - PNEUMONIA [None]
  - PULMONARY MYCOSIS [None]
  - ACUTE GRAFT VERSUS HOST DISEASE [None]
  - SHOCK HAEMORRHAGIC [None]
  - SYSTEMIC MYCOSIS [None]
  - INTESTINAL OBSTRUCTION [None]
  - CIRCULATORY COLLAPSE [None]
  - MULTI-ORGAN FAILURE [None]
  - CYTOMEGALOVIRUS INFECTION [None]
  - STAPHYLOCOCCAL SEPSIS [None]
